FAERS Safety Report 5495517-5 (Version None)
Quarter: 2007Q4

REPORT INFORMATION
  Report Type: 
  Country: None (occurrence: None)
  Receive Date: 20071023
  Receipt Date: 20071008
  Transmission Date: 20080405
  Serious: Yes (Other)
  Sender: FDA-Public Use
  Company Number: 2007S1010104

PATIENT
  Age: 73 Year
  Sex: Male

DRUGS (10)
  1. CARVEDILOL [Suspect]
     Indication: HYPERTENSION
     Dosage: 3.125 MG; DAILY; ORAL
     Route: 048
     Dates: start: 20070501
  2. ASPIRIN [Concomitant]
  3. BISOPROLOL FUMARATE [Concomitant]
  4. CANDESARTAN CILEXETIL [Concomitant]
  5. DIGOXIN [Concomitant]
  6. METFORMIN HCL [Concomitant]
  7. QUININE [Concomitant]
  8. SIMVASTATIN [Concomitant]
  9. TEMAZEPAM [Concomitant]
  10. WARFARIN SODIUM [Concomitant]

REACTIONS (3)
  - BALANCE DISORDER [None]
  - DIZZINESS [None]
  - PAIN IN EXTREMITY [None]
